FAERS Safety Report 5234391-9 (Version None)
Quarter: 2007Q1

REPORT INFORMATION
  Report Type: 
  Country: None (occurrence: None)
  Receive Date: 20070207
  Receipt Date: 20070207
  Transmission Date: 20070707
  Serious: Yes (Hospitalization)
  Sender: FDA-Public Use
  Company Number: None

PATIENT
  Age: 55 Year
  Sex: Female
  Weight: 65.7716 kg

DRUGS (3)
  1. LYRICA [Suspect]
     Indication: INTERVERTEBRAL DISC PROTRUSION
     Dosage: 1 TABLET 3 TIMES/DAY
     Dates: start: 20070115, end: 20070131
  2. LYRICA [Suspect]
     Indication: NERVE COMPRESSION
     Dosage: 1 TABLET 3 TIMES/DAY
     Dates: start: 20070115, end: 20070131
  3. LYRICA [Suspect]
     Indication: NEURALGIA
     Dosage: 1 TABLET 3 TIMES/DAY
     Dates: start: 20070115, end: 20070131

REACTIONS (4)
  - EYE DISORDER [None]
  - EYE PAIN [None]
  - IMPAIRED DRIVING ABILITY [None]
  - STRABISMUS [None]
